APPROVED DRUG PRODUCT: TRIMETHOPRIM
Active Ingredient: TRIMETHOPRIM
Strength: 100MG
Dosage Form/Route: TABLET;ORAL
Application: A070049 | Product #001 | TE Code: AB
Applicant: WATSON LABORATORIES INC
Approved: Jun 6, 1985 | RLD: No | RS: No | Type: RX